FAERS Safety Report 23974863 (Version 1)
Quarter: 2024Q2

REPORT INFORMATION
  Report Type: Report from Study
  Country: US (occurrence: None)
  Receive Date: 20240614
  Receipt Date: 20240614
  Transmission Date: 20240716
  Serious: Yes (Other)
  Sender: FDA-Public Use
  Company Number: 2024A134206

PATIENT
  Sex: Male

DRUGS (1)
  1. WAINUA [Suspect]
     Active Substance: EPLONTERSEN
     Indication: Hereditary disorder
     Route: 058

REACTIONS (2)
  - Vitamin B12 decreased [Unknown]
  - Drug ineffective [Unknown]

NARRATIVE: CASE EVENT DATE: 20240501
